FAERS Safety Report 5478257-8 (Version None)
Quarter: 2007Q4

REPORT INFORMATION
  Report Type: 
  Country: None (occurrence: None)
  Receive Date: 20071005
  Receipt Date: 20070928
  Transmission Date: 20080405
  Serious: Yes (Other)
  Sender: FDA-Public Use
  Company Number: BE-BAYER-200715780GDS

PATIENT
  Age: 54 Year
  Sex: Female

DRUGS (6)
  1. AVELOX [Suspect]
     Indication: BRONCHITIS
     Dosage: TOTAL DAILY DOSE: 400 MG  UNIT DOSE: 400 MG
     Route: 048
     Dates: start: 20070710, end: 20070720
  2. CRESTOR [Concomitant]
     Indication: HYPERCHOLESTEROLAEMIA
     Dosage: TOTAL DAILY DOSE: 10 MG  UNIT DOSE: 10 MG
     Route: 048
  3. DIOVAN [Concomitant]
     Indication: HYPERTENSION
     Dosage: TOTAL DAILY DOSE: 80 MG
     Route: 048
  4. IBUPROFEN [Concomitant]
     Indication: BRONCHITIS
     Route: 048
     Dates: start: 20070701, end: 20070701
  5. HYGROTON [Concomitant]
     Indication: BRONCHITIS
     Route: 048
     Dates: start: 20070701, end: 20070701
  6. DUOVENT [Concomitant]
     Indication: BRONCHITIS
     Route: 055
     Dates: start: 20070701, end: 20070701

REACTIONS (5)
  - DIABETES MELLITUS [None]
  - DIPLOPIA [None]
  - DRY MOUTH [None]
  - HEADACHE [None]
  - HYPERGLYCAEMIA [None]
